FAERS Safety Report 5498216-9 (Version None)
Quarter: 2007Q4

REPORT INFORMATION
  Report Type: 
  Country: None (occurrence: None)
  Receive Date: 20071025
  Receipt Date: 20070412
  Transmission Date: 20080405
  Serious: No
  Sender: FDA-Public Use
  Company Number: A0647024A

PATIENT
  Age: 68 Year
  Sex: Female

DRUGS (6)
  1. ADVAIR DISKUS 100/50 [Suspect]
     Indication: COUGH
     Dosage: 1PUFF TWICE PER DAY
     Route: 055
     Dates: start: 20070412
  2. PROAIR HFA [Concomitant]
  3. ZANTAC [Concomitant]
  4. LEXAPRO [Concomitant]
  5. VITAMIN E [Concomitant]
  6. KEFLEX [Concomitant]

REACTIONS (2)
  - CHEST PAIN [None]
  - OVERDOSE [None]
